FAERS Safety Report 9022248 (Version 1)
Quarter: 2013Q1

REPORT INFORMATION
  Report Type: Spontaneous
  Country: US (occurrence: US)
  Receive Date: 20130118
  Receipt Date: 20130118
  Transmission Date: 20140127
  Serious: Yes (Hospitalization)
  Sender: FDA-Public Use
  Company Number: US-BAYER-2013-005115

PATIENT
  Age: 18 Year
  Sex: Female
  Weight: 48 kg

DRUGS (13)
  1. YAZ [Suspect]
  2. YASMIN [Suspect]
     Indication: POLYCYSTIC OVARIES
  3. OCELLA [Suspect]
  4. AMOXICILLIN [Concomitant]
     Dosage: 875 MG, UNK
     Route: 048
  5. SPIRONOLACTONE [Concomitant]
  6. KEPPRA [Concomitant]
  7. PROTONIX [Concomitant]
  8. PERCOCET [Concomitant]
  9. DILAUDID [Concomitant]
  10. ATIVAN [Concomitant]
  11. FOSPHENYTOIN [Concomitant]
  12. PHENYTOIN [Concomitant]
  13. TYLENOL [Concomitant]

REACTIONS (3)
  - Haemorrhagic stroke [None]
  - Intracranial venous sinus thrombosis [None]
  - Superior sagittal sinus thrombosis [None]
